FAERS Safety Report 8620183-7 (Version None)
Quarter: 2012Q3

REPORT INFORMATION
  Report Type: 
  Country: None (occurrence: None)
  Receive Date: 20120824
  Receipt Date: 20120821
  Transmission Date: 20120928
  Serious: Yes (Death, Hospitalization)
  Sender: FDA-Public Use
  Company Number: PHHY2012AR072528

PATIENT
  Age: 80 Year
  Sex: Female

DRUGS (1)
  1. NAPROXEN [Suspect]

REACTIONS (14)
  - HAEMODYNAMIC INSTABILITY [None]
  - DYSPNOEA [None]
  - MELAENA [None]
  - FLUID OVERLOAD [None]
  - VOMITING [None]
  - HAEMATOCHEZIA [None]
  - BLOOD PRESSURE DECREASED [None]
  - TACHYCARDIA [None]
  - CARDIO-RESPIRATORY ARREST [None]
  - ABDOMINAL PAIN UPPER [None]
  - HYPERHIDROSIS [None]
  - THROMBOSIS [None]
  - GASTRIC ULCER HAEMORRHAGE [None]
  - TACHYPNOEA [None]
